FAERS Safety Report 25315295 (Version 1)
Quarter: 2025Q2

REPORT INFORMATION
  Report Type: Spontaneous
  Country: GB (occurrence: GB)
  Receive Date: 20250514
  Receipt Date: 20250514
  Transmission Date: 20250716
  Serious: Yes (Hospitalization)
  Sender: EISAI
  Company Number: GB-Eisai-EC-2025-189238

PATIENT
  Age: 55 Year
  Sex: Male

DRUGS (5)
  1. LENVATINIB [Suspect]
     Active Substance: LENVATINIB
     Indication: Clear cell renal cell carcinoma
     Dates: start: 2024, end: 202408
  2. LENVATINIB [Suspect]
     Active Substance: LENVATINIB
     Dates: start: 202408, end: 202409
  3. LENVATINIB [Suspect]
     Active Substance: LENVATINIB
     Dates: start: 202409, end: 202503
  4. LENVATINIB [Suspect]
     Active Substance: LENVATINIB
     Dates: start: 202504
  5. PEMBROLIZUMAB [Concomitant]
     Active Substance: PEMBROLIZUMAB
     Indication: Clear cell renal cell carcinoma

REACTIONS (4)
  - Haemorrhage [Unknown]
  - Platelet count decreased [Unknown]
  - Decreased appetite [Unknown]
  - Dry skin [Unknown]

NARRATIVE: CASE EVENT DATE: 20240801
